APPROVED DRUG PRODUCT: NEURONTIN
Active Ingredient: GABAPENTIN
Strength: 300MG
Dosage Form/Route: CAPSULE;ORAL
Application: N020235 | Product #002 | TE Code: AB
Applicant: VIATRIS SPECIALTY LLC
Approved: Dec 30, 1993 | RLD: Yes | RS: No | Type: RX